FAERS Safety Report 4706398-9 (Version None)
Quarter: 2005Q2

REPORT INFORMATION
  Report Type: 
  Country: None (occurrence: None)
  Receive Date: 20050112
  Receipt Date: 20050112
  Transmission Date: 20051028
  Serious: Yes (Other)
  Sender: FDA-Public Use
  Company Number: None

PATIENT
  Sex: Male
  Weight: 73.9363 kg

DRUGS (5)
  1. DILANTIN [Suspect]
     Indication: EPILEPSY
     Dosage: SINCE
  2. LAMICTAL [Concomitant]
  3. DEPAKOTE [Concomitant]
  4. SEROQUEL [Concomitant]
  5. LEVOCARNITINE [Concomitant]

REACTIONS (1)
  - NO ADVERSE EFFECT [None]
